FAERS Safety Report 21774077 (Version 2)
Quarter: 2023Q1

REPORT INFORMATION
  Report Type: Report from Study
  Country: GB (occurrence: GB)
  Receive Date: 20221223
  Receipt Date: 20230227
  Transmission Date: 20230418
  Serious: Yes (Hospitalization, Other)
  Sender: FDA-Public Use
  Company Number: GB-KARYOPHARM THERAPEUTICS, INC.-2022KPT001644

PATIENT

DRUGS (2)
  1. SELINEXOR [Suspect]
     Active Substance: SELINEXOR
     Indication: Plasma cell myeloma
     Dosage: LOWEST DOSE
     Route: 048
     Dates: start: 202205, end: 202207
  2. DEXAMETHASONE [Concomitant]
     Active Substance: DEXAMETHASONE
     Indication: Product used for unknown indication
     Dosage: UNK
     Route: 065
     Dates: start: 202205, end: 202207

REACTIONS (2)
  - Blood sodium decreased [Recovered/Resolved]
  - Plasma cell myeloma refractory [Recovered/Resolved]

NARRATIVE: CASE EVENT DATE: 20220501
